FAERS Safety Report 23871313 (Version 3)
Quarter: 2024Q2

REPORT INFORMATION
  Report Type: Spontaneous
  Country: US (occurrence: US)
  Receive Date: 20240519
  Receipt Date: 20240615
  Transmission Date: 20240715
  Serious: Yes (Other)
  Sender: FDA-Public Use
  Company Number: US-GSK-US2024AMR061431

PATIENT
  Sex: Female

DRUGS (1)
  1. BENLYSTA [Suspect]
     Active Substance: BELIMUMAB
     Indication: Sjogren^s syndrome
     Dosage: 200 MG, WE
     Route: 058

REACTIONS (3)
  - Seizure [Unknown]
  - Amnesia [Unknown]
  - Product use in unapproved indication [Unknown]
